FAERS Safety Report 10481263 (Version 2)
Quarter: 2015Q1

REPORT INFORMATION
  Report Type: Spontaneous
  Country: FR (occurrence: FR)
  Receive Date: 20140929
  Receipt Date: 20150331
  Transmission Date: 20150720
  Serious: Yes (Hospitalization)
  Sender: FDA-Public Use
  Company Number: FR-JNJFOC-20140916319

PATIENT
  Age: 54 Year
  Sex: Female

DRUGS (2)
  1. CAELYX (DOXORUBICIN HYDROCHLORIDE) [Suspect]
     Active Substance: DOXORUBICIN HYDROCHLORIDE
     Indication: OVARIAN CANCER
     Route: 042
     Dates: start: 20140828
  2. YONDELIS [Suspect]
     Active Substance: TRABECTEDIN
     Indication: OVARIAN CANCER
     Route: 042
     Dates: start: 20140828, end: 20140828

REACTIONS (4)
  - Thrombocytopenia [Recovering/Resolving]
  - Agranulocytosis [Recovering/Resolving]
  - Febrile neutropenia [Recovering/Resolving]
  - Pyrexia [Recovering/Resolving]

NARRATIVE: CASE EVENT DATE: 20140906
